FAERS Safety Report 18318823 (Version 1)
Quarter: 2020Q3

REPORT INFORMATION
  Report Type: Spontaneous
  Country: US (occurrence: US)
  Receive Date: 20200925
  Receipt Date: 20200925
  Transmission Date: 20201103
  Serious: No
  Sender: FDA-Public Use
  Company Number: None

PATIENT
  Age: 73 Year
  Sex: Female
  Weight: 82.6 kg

DRUGS (1)
  1. STERILE WATER [Suspect]
     Active Substance: WATER
     Indication: COVID-19
     Dosage: ?          OTHER ROUTE:INHALATION?
     Route: 055

REACTIONS (2)
  - Incorrect route of product administration [None]
  - Product packaging confusion [None]

NARRATIVE: CASE EVENT DATE: 20200820
